FAERS Safety Report 23031721 (Version 3)
Quarter: 2023Q4

REPORT INFORMATION
  Report Type: Report from Study
  Country: TR (occurrence: TR)
  Receive Date: 20231005
  Receipt Date: 20231102
  Transmission Date: 20240109
  Serious: Yes (Hospitalization)
  Sender: FDA-Public Use
  Company Number: TR-009507513-2309TUR007324

PATIENT
  Age: 64 Year
  Sex: Male
  Weight: 81 kg

DRUGS (20)
  1. PEMBROLIZUMAB [Suspect]
     Active Substance: PEMBROLIZUMAB
     Indication: Non-small cell lung cancer metastatic
     Dosage: 200 MILLIGRAM, Q3W
     Route: 042
     Dates: start: 20230331, end: 20230904
  2. PEMBROLIZUMAB [Suspect]
     Active Substance: PEMBROLIZUMAB
     Dosage: 200 MILLIGRAM, Q3W C9D1
     Route: 042
     Dates: start: 20230925
  3. SACITUZUMAB GOVITECAN-HZIY [Suspect]
     Active Substance: SACITUZUMAB GOVITECAN-HZIY
     Indication: Non-small cell lung cancer metastatic
     Dosage: 10 MILLIGRAM/KILOGRAM, ON DAYS 1 AND 8 Q3W
     Route: 042
     Dates: start: 20230331, end: 20230911
  4. SACITUZUMAB GOVITECAN-HZIY [Suspect]
     Active Substance: SACITUZUMAB GOVITECAN-HZIY
     Dosage: 10 MILLIGRAM/KILOGRAM, ON DAYS 1 AND 8 Q3W, C9D1
     Route: 042
     Dates: start: 20230925
  5. PLETAL [Concomitant]
     Active Substance: CILOSTAZOL
     Indication: Peripheral arterial occlusive disease
     Dosage: [4]  100 MG DAILY, FREQ: QD
     Route: 048
     Dates: start: 202301
  6. GLYCOPYRROLATE\INDACATEROL MALEATE [Concomitant]
     Active Substance: GLYCOPYRROLATE\INDACATEROL MALEATE
     Indication: Chronic obstructive pulmonary disease
     Dosage: [38]  128 UG DAILY, FREQ: QD; FORMULATION: INHALANT
     Route: 055
     Dates: start: 20230526
  7. PLAVIX [Concomitant]
     Active Substance: CLOPIDOGREL BISULFATE
     Indication: Peripheral arterial occlusive disease
     Dosage: [117]  75 MG DAILY, FREQ: QD
     Route: 048
     Dates: start: 20230808
  8. AERIUS (DESLORATADINE) [Concomitant]
     Active Substance: DESLORATADINE
     Indication: Pruritus
     Dosage: [110]  5 MG DAILY, FREQ: QD
     Route: 048
     Dates: start: 20230821, end: 20230902
  9. DEKSAMET [DEXAMETHASONE] [Concomitant]
     Indication: Premedication
     Dosage: [118]  8 MG DAILY, FREQ: ONCE
     Route: 042
     Dates: start: 20230904, end: 20230904
  10. DEKSAMET [DEXAMETHASONE] [Concomitant]
     Dosage: [123]  8 MG DAILY, FREQ: ONCE
     Route: 042
     Dates: start: 20230911, end: 20230911
  11. ONDANSETRON HYDROCHLORIDE [Concomitant]
     Active Substance: ONDANSETRON HYDROCHLORIDE
     Indication: Premedication
     Dosage: [121]  8 MG DAILY, FREQ: ONCE
     Route: 042
     Dates: start: 20230904, end: 20230904
  12. ONDANSETRON HYDROCHLORIDE [Concomitant]
     Active Substance: ONDANSETRON HYDROCHLORIDE
     Dosage: [126]  8 MG DAILY, FREQ: ONCE
     Route: 042
     Dates: start: 20230911, end: 20230911
  13. AVIJECT [Concomitant]
     Indication: Premedication
     Dosage: [120]  45.5 MG DAILY, FREQ: ONCE
     Route: 042
     Dates: start: 20230904, end: 20230904
  14. AVIJECT [Concomitant]
     Dosage: [125]  45.5 MG DAILY, FREQ: ONCE
     Route: 042
     Dates: start: 20230911, end: 20230911
  15. ZYGOSIS [Concomitant]
     Indication: Premedication
     Dosage: [119]  40 MG DAILY, FREQ: ONCE
     Route: 042
     Dates: start: 20230904, end: 20230904
  16. ZYGOSIS [Concomitant]
     Dosage: [124]  40 MG DAILY, FREQ: ONCE
     Route: 042
     Dates: start: 20230911, end: 20230911
  17. SODIUM CHLORIDE [Concomitant]
     Active Substance: SODIUM CHLORIDE
     Indication: Premedication
     Dosage: [122]  500 BAG DAILY, FREQ: ONCE; STRENGTH: 500 BAG
     Route: 042
     Dates: start: 20230904, end: 20230904
  18. SODIUM CHLORIDE [Concomitant]
     Active Substance: SODIUM CHLORIDE
     Dosage: [127]  100 BAG DAILY, FREQ: ONCE; STRENGTH: 100 BAG
     Route: 042
     Dates: start: 20230911, end: 20230911
  19. HUMAN RED BLOOD CELL [Concomitant]
     Active Substance: HUMAN RED BLOOD CELL
     Indication: Anaemia
     Dosage: 2 UNITS
     Dates: start: 20230920
  20. HUMAN RED BLOOD CELL [Concomitant]
     Active Substance: HUMAN RED BLOOD CELL
     Dosage: 2 UNITS
     Dates: start: 20230922

REACTIONS (1)
  - Haemorrhoidal haemorrhage [Recovered/Resolved]

NARRATIVE: CASE EVENT DATE: 20230911
